FAERS Safety Report 14754959 (Version 2)
Quarter: 2018Q2

REPORT INFORMATION
  Report Type: Spontaneous
  Country: NO (occurrence: NO)
  Receive Date: 20180413
  Receipt Date: 20180430
  Transmission Date: 20180711
  Serious: Yes (Death, Life-Threatening, Hospitalization, Other)
  Sender: FDA-Public Use
  Company Number: NO-009507513-1804NOR003413

PATIENT
  Age: 67 Year
  Sex: Female

DRUGS (1)
  1. KEYTRUDA [Suspect]
     Active Substance: PEMBROLIZUMAB
     Indication: LUNG ADENOCARCINOMA
     Dosage: ADMINISTERED 10 TIMES BEFORE DISCONTINUATION DUE TO ADVERSE REACTION.
     Route: 042
     Dates: start: 20170811, end: 20180219

REACTIONS (3)
  - Cardiac failure [Fatal]
  - Myocarditis [Fatal]
  - Ventricular tachycardia [Fatal]

NARRATIVE: CASE EVENT DATE: 20180309
